FAERS Safety Report 7643091-7 (Version None)
Quarter: 2011Q3

REPORT INFORMATION
  Report Type: 
  Country: None (occurrence: None)
  Receive Date: 20110728
  Receipt Date: 20110719
  Transmission Date: 20111222
  Serious: Yes (Hospitalization, Other)
  Sender: FDA-Public Use
  Company Number: US-ASTRAZENECA-2010SE56602

PATIENT
  Age: 62 Year
  Sex: Female

DRUGS (2)
  1. SYMBICORT [Suspect]
     Indication: CHRONIC OBSTRUCTIVE PULMONARY DISEASE
     Dosage: 160/ 4.5 MCG
     Route: 055
  2. NEXIUM [Suspect]
     Route: 048

REACTIONS (4)
  - BARRETT'S OESOPHAGUS [None]
  - DYSPEPSIA [None]
  - VOMITING [None]
  - LUNG DISORDER [None]
